FAERS Safety Report 10177409 (Version 2)
Quarter: 2014Q2

REPORT INFORMATION
  Report Type: Spontaneous
  Country: US (occurrence: US)
  Receive Date: 20140516
  Receipt Date: 20140521
  Transmission Date: 20141212
  Serious: No
  Sender: FDA-Public Use
  Company Number: US-009507513-1405USA000752

PATIENT
  Age: 82 Year
  Sex: Female

DRUGS (3)
  1. OXYTROL FOR WOMEN [Suspect]
     Indication: INCONTINENCE
     Dosage: UNK UNK, UNKNOWN
     Route: 062
     Dates: start: 20140310
  2. OXYTROL FOR WOMEN [Suspect]
     Indication: NOCTURIA
  3. METFORMIN [Concomitant]
     Indication: DIABETES MELLITUS
     Dosage: UNK, UNKNOWN

REACTIONS (3)
  - Product package associated injury [Unknown]
  - Off label use [Unknown]
  - Product packaging issue [Unknown]
